FAERS Safety Report 8346891-3 (Version None)
Quarter: 2012Q2

REPORT INFORMATION
  Report Type: 
  Country: None (occurrence: None)
  Receive Date: 20120509
  Receipt Date: 20120504
  Transmission Date: 20120825
  Serious: Yes (Other)
  Sender: FDA-Public Use
  Company Number: BR-PFIZER INC-2012111011

PATIENT
  Age: 36 Year
  Sex: Female
  Weight: 75 kg

DRUGS (1)
  1. LEVONORGESTREL AND ETHINYL ESTRADIOL [Suspect]
     Indication: CONTRACEPTION
     Dosage: 1 DF, ONCE DAILY, FOR 21 DAYS AND 7 DAYS BREAK
     Route: 048
     Dates: start: 20111101

REACTIONS (5)
  - NAUSEA [None]
  - DRUG DOSE OMISSION [None]
  - DIZZINESS [None]
  - MENSTRUAL DISORDER [None]
  - URINARY TRACT INFECTION [None]
